FAERS Safety Report 5954807-X (Version None)
Quarter: 2008Q4

REPORT INFORMATION
  Report Type: 
  Country: None (occurrence: None)
  Receive Date: 20081117
  Receipt Date: 20081110
  Transmission Date: 20090506
  Serious: Yes (Other)
  Sender: FDA-Public Use
  Company Number: US-JNJFOC-20080803579

PATIENT
  Sex: Female
  Weight: 68.49 kg

DRUGS (19)
  1. REMICADE [Suspect]
     Route: 042
  2. REMICADE [Suspect]
     Route: 042
  3. REMICADE [Suspect]
     Route: 042
  4. REMICADE [Suspect]
     Route: 042
  5. REMICADE [Suspect]
     Route: 042
  6. REMICADE [Suspect]
     Indication: RHEUMATOID ARTHRITIS
     Route: 042
  7. SOLU-MEDROL [Concomitant]
     Indication: PREMEDICATION
     Route: 042
  8. CIPROFLOXACIN [Concomitant]
  9. FOLIC ACID [Concomitant]
  10. ALEVE [Concomitant]
  11. CALCIUM [Concomitant]
  12. PREDNISONE TAB [Concomitant]
  13. METHOTREXATE [Concomitant]
  14. EYE FORMULA [Concomitant]
  15. KENALOG [Concomitant]
  16. KENALOG [Concomitant]
  17. KENALOG [Concomitant]
  18. KENALOG [Concomitant]
  19. KENALOG [Concomitant]
     Indication: SYNOVITIS

REACTIONS (13)
  - ANAEMIA [None]
  - CHEST DISCOMFORT [None]
  - CRYSTAL ARTHROPATHY [None]
  - ESCHERICHIA INFECTION [None]
  - FATIGUE [None]
  - FLUSHING [None]
  - HEPATIC LESION [None]
  - INFUSION RELATED REACTION [None]
  - JOINT EFFUSION [None]
  - RENAL CYST [None]
  - RHEUMATOID ARTHRITIS [None]
  - SYNOVITIS [None]
  - URINARY TRACT INFECTION [None]
